FAERS Safety Report 11553505 (Version 2)
Quarter: 2015Q4

REPORT INFORMATION
  Report Type: Spontaneous
  Country: GB (occurrence: GB)
  Receive Date: 20150925
  Receipt Date: 20151009
  Transmission Date: 20160304
  Serious: Yes (Other)
  Sender: FDA-Public Use
  Company Number: GB-PFIZER INC-2015317324

PATIENT
  Age: 26 Year
  Sex: Female

DRUGS (1)
  1. ETHINYLESTRADIOL/LEVONORGESTREL [Suspect]
     Active Substance: ETHINYL ESTRADIOL\LEVONORGESTREL
     Indication: POST COITAL CONTRACEPTION
     Dosage: 2 TABLETS OF LEVONORGESTREL 250 UG/ETHINYLESTRADIOL 50 UG) TAKEN IMMEDIATELY AND REPEATED 12 H LATER

REACTIONS (4)
  - Shock [None]
  - Peritonitis [None]
  - Ectopic pregnancy [Unknown]
  - Drug ineffective for unapproved indication [Unknown]
